FAERS Safety Report 16104356 (Version 1)
Quarter: 2019Q1

REPORT INFORMATION
  Report Type: Report from Study
  Country: GB (occurrence: GB)
  Receive Date: 20190322
  Receipt Date: 20190322
  Transmission Date: 20190418
  Serious: Yes (Other)
  Sender: FDA-Public Use
  Company Number: GB-ASTELLAS-2019US011981

PATIENT
  Age: 94 Year
  Sex: Male

DRUGS (2)
  1. ENZALUTAMIDE [Suspect]
     Active Substance: ENZALUTAMIDE
     Indication: PROSTATE CANCER METASTATIC
     Dosage: UNK, CYCLIC
     Route: 065
     Dates: start: 20160322
  2. ENZALUTAMIDE [Suspect]
     Active Substance: ENZALUTAMIDE
     Dosage: UNK, CYCLIC
     Route: 065

REACTIONS (3)
  - Adverse drug reaction [Unknown]
  - Urosepsis [Unknown]
  - Fatigue [Unknown]
